FAERS Safety Report 19768305 (Version 11)
Quarter: 2021Q4

REPORT INFORMATION
  Report Type: Spontaneous
  Country: ES (occurrence: ES)
  Receive Date: 20210830
  Receipt Date: 20211220
  Transmission Date: 20220304
  Serious: Yes (Hospitalization, Other)
  Sender: FDA-Public Use
  Company Number: ES-ALXN-A202109585

PATIENT
  Age: 13 Week
  Sex: Female
  Weight: 5 kg

DRUGS (7)
  1. KANUMA [Suspect]
     Active Substance: SEBELIPASE ALFA
     Indication: Lysosomal acid lipase deficiency
     Dosage: 1 MG/KG, SINGLE
     Route: 065
     Dates: start: 20210821, end: 20210821
  2. KANUMA [Suspect]
     Active Substance: SEBELIPASE ALFA
     Dosage: UNK
     Route: 065
     Dates: start: 20210822
  3. KANUMA [Suspect]
     Active Substance: SEBELIPASE ALFA
     Dosage: 4 MG/KG, SINGLE
     Route: 065
     Dates: start: 20210825
  4. KANUMA [Suspect]
     Active Substance: SEBELIPASE ALFA
     Dosage: 5 MG/KG, TIW
     Route: 065
     Dates: start: 20210829
  5. KANUMA [Suspect]
     Active Substance: SEBELIPASE ALFA
     Dosage: 30 MG, Q4H
     Route: 065
  6. KANUMA [Suspect]
     Active Substance: SEBELIPASE ALFA
     Dosage: 5 MG/KG, QW
     Route: 065
  7. NORADRENALINE                      /00127501/ [Concomitant]
     Indication: Vasopressive therapy
     Dosage: UNK
     Route: 065

REACTIONS (22)
  - Pneumonia [Unknown]
  - Ascites [Recovering/Resolving]
  - Inflammation [Recovering/Resolving]
  - Sedation [Recovering/Resolving]
  - Hepatorenal syndrome [Unknown]
  - Respiratory failure [Recovered/Resolved]
  - Apnoea [Recovered/Resolved]
  - Bradycardia [Recovered/Resolved]
  - Acute respiratory distress syndrome [Unknown]
  - Enterocolitis [Recovered/Resolved]
  - Rectal haemorrhage [Recovered/Resolved]
  - Brain oedema [Unknown]
  - Haemophagocytic lymphohistiocytosis [Unknown]
  - Hypervolaemia [Not Recovered/Not Resolved]
  - Pleural effusion [Recovering/Resolving]
  - Withdrawal syndrome [Unknown]
  - Renal failure [Unknown]
  - Thrombocytopenia [Unknown]
  - Anaemia [Unknown]
  - Pyrexia [Unknown]
  - Abdominal compartment syndrome [Unknown]
  - Off label use [Unknown]

NARRATIVE: CASE EVENT DATE: 20210821
